FAERS Safety Report 11237144 (Version 2)
Quarter: 2015Q3

REPORT INFORMATION
  Report Type: Spontaneous
  Country: US (occurrence: US)
  Receive Date: 20150703
  Receipt Date: 20150910
  Transmission Date: 20151125
  Serious: No
  Sender: FDA-Public Use
  Company Number: US-009507513-1506USA007847

PATIENT
  Sex: Female

DRUGS (1)
  1. ISENTRESS [Suspect]
     Active Substance: RALTEGRAVIR POTASSIUM
     Route: 048

REACTIONS (5)
  - Tooth extraction [Unknown]
  - Oral infection [Unknown]
  - Diverticulitis [Unknown]
  - Constipation [Unknown]
  - Cardiac failure congestive [Unknown]
